FAERS Safety Report 9109223 (Version 3)
Quarter: 2013Q2

REPORT INFORMATION
  Report Type: Report from Study
  Country: GB (occurrence: GB)
  Receive Date: 20130222
  Receipt Date: 20130430
  Transmission Date: 20140414
  Serious: Yes (Life-Threatening, Hospitalization, Disabling, Other)
  Sender: FDA-Public Use
  Company Number: GB-CELGENEUS-167-21880-13022343

PATIENT
  Age: 77 Year
  Sex: Female

DRUGS (1)
  1. REVLIMID [Suspect]
     Indication: PLASMA CELL MYELOMA
     Route: 048
     Dates: start: 20120117, end: 20130122

REACTIONS (5)
  - Plasma cell myeloma [Recovered/Resolved]
  - Fatigue [Recovering/Resolving]
  - Sepsis [Recovered/Resolved]
  - No therapeutic response [Unknown]
  - Anaemia [Recovering/Resolving]
